FAERS Safety Report 23714086 (Version 1)
Quarter: 2024Q2

REPORT INFORMATION
  Report Type: Spontaneous
  Country: US (occurrence: US)
  Receive Date: 20240405
  Receipt Date: 20240405
  Transmission Date: 20240716
  Serious: No
  Sender: FDA-Public Use
  Company Number: US-009507513-2403USA003155

PATIENT
  Age: 2 Year

DRUGS (7)
  1. VAQTA [Suspect]
     Active Substance: HEPATITIS A VIRUS STRAIN CR 326F ANTIGEN (FORMALDEHYDE INACTIVATED)
     Indication: Prophylaxis
     Dates: start: 20220919
  2. VAQTA [Suspect]
     Active Substance: HEPATITIS A VIRUS STRAIN CR 326F ANTIGEN (FORMALDEHYDE INACTIVATED)
     Dates: start: 20240109
  3. VAQTA [Suspect]
     Active Substance: HEPATITIS A VIRUS STRAIN CR 326F ANTIGEN (FORMALDEHYDE INACTIVATED)
     Indication: Prophylaxis
     Dosage: .5 MILLILITER
     Dates: start: 20240305
  4. PROQUAD [Suspect]
     Active Substance: MEASLES VIRUS STRAIN ENDERS^ ATTENUATED EDMONSTON LIVE ANTIGEN\MUMPS VIRUS STRAIN B LEVEL JERYL LYNN
     Indication: Prophylaxis
     Dates: start: 20220919
  5. PROQUAD [Suspect]
     Active Substance: MEASLES VIRUS STRAIN ENDERS^ ATTENUATED EDMONSTON LIVE ANTIGEN\MUMPS VIRUS STRAIN B LEVEL JERYL LYNN
     Dosage: .5 MILLILITER
     Dates: start: 20240305
  6. STERILE DILUENT (WATER) [Suspect]
     Active Substance: WATER
     Dosage: UNK
  7. PREVNAR 20 [Suspect]
     Active Substance: PNEUMOCOCCAL 20-VALENT CONJUGATE VACCINE
     Indication: Prophylaxis
     Dosage: UNK

REACTIONS (4)
  - Product administered to patient of inappropriate age [Unknown]
  - Extra dose administered [Unknown]
  - Inappropriate schedule of product administration [Unknown]
  - No adverse event [Unknown]

NARRATIVE: CASE EVENT DATE: 20240305
